FAERS Safety Report 6699420-4 (Version None)
Quarter: 2010Q2

REPORT INFORMATION
  Report Type: 
  Country: None (occurrence: None)
  Receive Date: 20100426
  Receipt Date: 20100419
  Transmission Date: 20101027
  Serious: Yes (Death)
  Sender: FDA-Public Use
  Company Number: 7001707

PATIENT
  Age: 60 Year
  Sex: Female

DRUGS (2)
  1. REBIF [Suspect]
     Indication: MULTIPLE SCLEROSIS
     Dosage: 44 MCG, 3 IN 1 WK, SUBCUTANEOUS
     Route: 058
     Dates: start: 20050606, end: 20090101
  2. TYLENOL PM(TYLENOL PM /01088101/) [Suspect]
     Indication: SOMNOLENCE
     Dosage: 1 IN 1 D  SLEEP
     Dates: end: 20090101

REACTIONS (1)
  - HEPATIC FAILURE [None]
